FAERS Safety Report 4284853-6 (Version None)
Quarter: 2004Q1

REPORT INFORMATION
  Report Type: 
  Country: None (occurrence: None)
  Receive Date: 20040202
  Receipt Date: 20031024
  Transmission Date: 20041129
  Serious: Yes (Hospitalization, Other)
  Sender: FDA-Public Use
  Company Number: KII-2003-0006977

PATIENT
  Age: 16 Year
  Sex: Male

DRUGS (3)
  1. MORPHINE SULFATE [Suspect]
  2. SSRI ( ) [Suspect]
  3. CARISOPRODOL [Suspect]

REACTIONS (13)
  - ASTHENIA [None]
  - BODY TEMPERATURE INCREASED [None]
  - DIZZINESS [None]
  - DRUG SCREEN POSITIVE [None]
  - HEART RATE INCREASED [None]
  - INFECTION [None]
  - MULTIPLE DRUG OVERDOSE [None]
  - OXYGEN SATURATION DECREASED [None]
  - PRURITUS [None]
  - RESPIRATORY DEPRESSION [None]
  - SEDATION [None]
  - SUICIDE ATTEMPT [None]
  - TREMOR [None]
